FAERS Safety Report 12534753 (Version 6)
Quarter: 2017Q1

REPORT INFORMATION
  Report Type: Spontaneous
  Country: GB (occurrence: GB)
  Receive Date: 20160706
  Receipt Date: 20170131
  Transmission Date: 20170428
  Serious: Yes (Other)
  Sender: FDA-Public Use
  Company Number: GB-BEH-2016070761

PATIENT
  Age: 26 Year
  Sex: Female
  Weight: 46.6 kg

DRUGS (3)
  1. RHOPHYLAC [Suspect]
     Active Substance: HUMAN RHO(D) IMMUNE GLOBULIN
     Dosage: 500 IU, TOT
     Route: 065
     Dates: start: 20160824
  2. RHOPHYLAC [Suspect]
     Active Substance: HUMAN RHO(D) IMMUNE GLOBULIN
     Indication: PROPHYLAXIS AGAINST RH ISOIMMUNISATION
     Dosage: 1500 IU, TOT
     Route: 030
     Dates: start: 20160606, end: 20160606
  3. PREGNACARE                         /02357101/ [Concomitant]
     Indication: PREGNANCY
     Dosage: 1 DF, UNK
     Route: 048

REACTIONS (8)
  - Tunnel vision [Recovered/Resolved]
  - Hypoaesthesia [Unknown]
  - Neurological symptom [Recovered/Resolved]
  - Hypoaesthesia oral [Recovered/Resolved]
  - Migraine with aura [Unknown]
  - Visual impairment [Recovered/Resolved]
  - Lack of spontaneous speech [Recovered/Resolved]
  - Paraesthesia [Recovered/Resolved]

NARRATIVE: CASE EVENT DATE: 20160606
